FAERS Safety Report 15759499 (Version 1)
Quarter: 2018Q4

REPORT INFORMATION
  Report Type: Spontaneous
  Country: BE (occurrence: BE)
  Receive Date: 20181226
  Receipt Date: 20181226
  Transmission Date: 20190205
  Serious: Yes (Other)
  Sender: FDA-Public Use
  Company Number: BE-TEVA-2018-BE-991104

PATIENT
  Sex: Female

DRUGS (7)
  1. ASAFLOW 80 MG [Concomitant]
  2. COZAAR PLUS 100 MG/12,5 MG [Suspect]
     Active Substance: HYDROCHLOROTHIAZIDE\LOSARTAN POTASSIUM
     Route: 065
  3. NOBITEN 5 MG COMPRIM?S [Concomitant]
  4. CORUNO RETARDTABLETTEN 16 MG [Concomitant]
  5. CEDOCARD 5 MG [Concomitant]
  6. AMLODIPINE 5 MG - TABLET [Suspect]
     Active Substance: AMLODIPINE BESYLATE
  7. TOTALIP 10 MG FILMOMHULDE TABLETTEN [Concomitant]

REACTIONS (3)
  - Rash pruritic [Unknown]
  - Ecchymosis [Unknown]
  - Dermatitis bullous [Unknown]

NARRATIVE: CASE EVENT DATE: 2018
